FAERS Safety Report 6239694-7 (Version None)
Quarter: 2009Q2

REPORT INFORMATION
  Report Type: 
  Country: None (occurrence: None)
  Receive Date: 20090619
  Receipt Date: 20090611
  Transmission Date: 20091009
  Serious: Yes (Hospitalization)
  Sender: FDA-Public Use
  Company Number: 2009JP003720

PATIENT
  Age: 57 Year
  Sex: Female

DRUGS (3)
  1. PROGRAF [Suspect]
     Indication: RHEUMATOID ARTHRITIS
     Dosage: 3 MG, /D, ORAL
     Route: 048
  2. VOLTAREN [Suspect]
     Dosage: 75 MG, /D, ORAL
     Route: 048
  3. STEROID FORMULATION [Concomitant]

REACTIONS (1)
  - LARGE INTESTINAL ULCER [None]
